FAERS Safety Report 13343380 (Version 1)
Quarter: 2017Q1

REPORT INFORMATION
  Report Type: Spontaneous
  Country: ES (occurrence: ES)
  Receive Date: 20170316
  Receipt Date: 20170316
  Transmission Date: 20170428
  Serious: Yes (Hospitalization, Other)
  Sender: FDA-Public Use
  Company Number: ES-MYLANLABS-2017M1016139

PATIENT

DRUGS (2)
  1. MESALAZINE [Suspect]
     Active Substance: MESALAMINE
     Indication: COLITIS ULCERATIVE
     Dosage: FOR 1 MONTH, DOSE REDUCED TO 1G, 12 HRLY AFTER COLITIS STABILSATION
     Route: 048
  2. MESALAZINE [Suspect]
     Active Substance: MESALAMINE
     Route: 048

REACTIONS (2)
  - Pulmonary fibrosis [Recovering/Resolving]
  - Interstitial lung disease [Recovering/Resolving]
